FAERS Safety Report 19911694 (Version 1)
Quarter: 2021Q4

REPORT INFORMATION
  Report Type: Spontaneous
  Country: US (occurrence: US)
  Receive Date: 20211001
  Receipt Date: 20211001
  Transmission Date: 20220304
  Serious: No
  Sender: FDA-Public Use
  Company Number: None

PATIENT
  Age: 38 Year
  Sex: Male

DRUGS (1)
  1. REMICADE [Suspect]
     Active Substance: INFLIXIMAB
     Dosage: OTHER DOSE:UNKNOWN;OTHER FREQUENCY:OTHER;
     Route: 042
     Dates: start: 202107, end: 202107

REACTIONS (2)
  - Mass [None]
  - Arthralgia [None]

NARRATIVE: CASE EVENT DATE: 20210701
